FAERS Safety Report 15553251 (Version 2)
Quarter: 2018Q4

REPORT INFORMATION
  Report Type: Spontaneous
  Country: US (occurrence: US)
  Receive Date: 20181026
  Receipt Date: 20181101
  Transmission Date: 20190205
  Serious: Yes (Other)
  Sender: FDA-Public Use
  Company Number: US-CIPLA LTD.-2018US21976

PATIENT

DRUGS (4)
  1. CLONAZEPAM. [Concomitant]
     Active Substance: CLONAZEPAM
     Indication: ANXIETY
     Dosage: 0.25 MG, QD (0.5MG WAS PRESCRIBED HOWEVER, CONSUMER STATED SHE IS TAKING 0.25MG)
     Route: 065
     Dates: start: 2018
  2. LYRICA [Concomitant]
     Active Substance: PREGABALIN
     Indication: FIBROMYALGIA
     Dosage: 75 MG, BID
     Route: 065
     Dates: start: 2011
  3. ESCITALOPRAM [Suspect]
     Active Substance: ESCITALOPRAM OXALATE
     Dosage: 10 MG, QD, WHOLE TABLET
     Route: 048
     Dates: start: 201808
  4. ESCITALOPRAM [Suspect]
     Active Substance: ESCITALOPRAM OXALATE
     Indication: DEPRESSION
     Dosage: 5 MG, QD (HALF OF ESCITALOPRAM 10MG)
     Route: 048
     Dates: start: 20180724

REACTIONS (2)
  - Alopecia [Not Recovered/Not Resolved]
  - Cortisol increased [Unknown]

NARRATIVE: CASE EVENT DATE: 2018
